FAERS Safety Report 7318589-1 (Version None)
Quarter: 2011Q1

REPORT INFORMATION
  Report Type: 
  Country: None (occurrence: None)
  Receive Date: 20110228
  Receipt Date: 20110215
  Transmission Date: 20110831
  Serious: Yes (Hospitalization)
  Sender: FDA-Public Use
  Company Number: IT-JNJFOC-20110206145

PATIENT
  Age: 2 Year
  Sex: Female

DRUGS (4)
  1. IBUPROFEN [Suspect]
     Indication: PHARYNGITIS
     Route: 065
  2. PARACETAMOL [Suspect]
     Indication: PHARYNGITIS
  3. IBUPROFEN [Suspect]
     Indication: PYREXIA
     Route: 065
  4. PARACETAMOL [Suspect]
     Indication: PYREXIA

REACTIONS (4)
  - RENAL TUBULAR ACIDOSIS [None]
  - BLOOD BICARBONATE DECREASED [None]
  - DEHYDRATION [None]
  - OEDEMA [None]
